FAERS Safety Report 4392385-X (Version None)
Quarter: 2004Q3

REPORT INFORMATION
  Report Type: 
  Country: None (occurrence: None)
  Receive Date: 20040702
  Receipt Date: 20040420
  Transmission Date: 20050211
  Serious: Yes (Other)
  Sender: FDA-Public Use
  Company Number: 2004UW04404

PATIENT
  Sex: Male

DRUGS (1)
  1. CRESTOR [Suspect]
     Dosage: 10 MG QD PO
     Route: 048
     Dates: start: 20040101

REACTIONS (6)
  - CONSTIPATION [None]
  - HEADACHE [None]
  - INFLUENZA [None]
  - PSORIASIS [None]
  - RASH [None]
  - URINARY TRACT INFECTION [None]
